FAERS Safety Report 8910999 (Version 2)
Quarter: 2012Q4

REPORT INFORMATION
  Report Type: 
  Country: GB (occurrence: GB)
  Receive Date: 20121116
  Receipt Date: 20121128
  Transmission Date: 20130627
  Serious: Yes (Hospitalization, Other)
  Sender: FDA-Public Use
  Company Number: GB-B.I. PHARMACEUTICALS,INC./RIDGEFIELD-2012-UK-01767UK

PATIENT
  Age: 74 Year
  Sex: Male
  Weight: 101 kg

DRUGS (9)
  1. DABIGATRAN [Suspect]
     Indication: ATRIAL FIBRILLATION
     Route: 048
  2. ATENOLOL [Concomitant]
     Dosage: 100 mg
  3. DIAZEPAM [Concomitant]
     Dosage: 6 mg
  4. FUROSEMIDE [Concomitant]
  5. MINOXIDIL [Concomitant]
     Dosage: 20 mg
  6. RAMIPRIL [Concomitant]
     Dosage: 2.5 mg
  7. SENNA [Concomitant]
     Dosage: 15 mg
  8. SIMVASTATIN [Concomitant]
     Dosage: 40 mg
  9. TERAZOSIN [Concomitant]
     Dosage: 5 mg

REACTIONS (2)
  - Rectal cancer [Unknown]
  - Rectal haemorrhage [Recovered/Resolved]
